FAERS Safety Report 5383861-1 (Version None)
Quarter: 2007Q3

REPORT INFORMATION
  Report Type: 
  Country: None (occurrence: None)
  Receive Date: 20070706
  Receipt Date: 20070626
  Transmission Date: 20080115
  Serious: Yes (Other)
  Sender: FDA-Public Use
  Company Number: T07-USA-02751-01

PATIENT
  Age: 65 Year
  Sex: Female
  Weight: 53.978 kg

DRUGS (7)
  1. MEMANTINE HCL [Suspect]
     Indication: DEMENTIA ALZHEIMER'S TYPE
     Dosage: 28 MG QD;PO
     Route: 048
     Dates: start: 20061206
  2. ACETAMINOPHEN [Concomitant]
  3. ASPIRIN [Concomitant]
  4. ARTHROTEC [Concomitant]
  5. TRIAMCINOLONE ACETONIDE [Concomitant]
  6. GALANTAMINE HYDROBROMIDE [Concomitant]
  7. GLUCOSAMINE CHONDROITIN [Concomitant]

REACTIONS (4)
  - BALANCE DISORDER [None]
  - ECCHYMOSIS [None]
  - FACE INJURY [None]
  - FALL [None]
